FAERS Safety Report 12333997 (Version 2)
Quarter: 2016Q2

REPORT INFORMATION
  Report Type: Spontaneous
  Country: US (occurrence: US)
  Receive Date: 20160504
  Receipt Date: 20160506
  Transmission Date: 20160815
  Serious: No
  Sender: FDA-Public Use
  Company Number: US-GLAXOSMITHKLINE-US2016062251

PATIENT
  Sex: Male

DRUGS (2)
  1. EXCEDRIN [Suspect]
     Active Substance: ACETAMINOPHEN\ASPIRIN\CAFFEINE
     Indication: PRODUCT USED FOR UNKNOWN INDICATION
     Dosage: 4 DF, UNK
  2. EXCEDRIN [Suspect]
     Active Substance: ACETAMINOPHEN\ASPIRIN\CAFFEINE
     Dosage: 2 PILLS, QD

REACTIONS (2)
  - Drug ineffective [Unknown]
  - Incorrect dose administered [Unknown]
